FAERS Safety Report 25804782 (Version 1)
Quarter: 2025Q3

REPORT INFORMATION
  Report Type: Spontaneous
  Country: GB (occurrence: GB)
  Receive Date: 20250915
  Receipt Date: 20250915
  Transmission Date: 20251020
  Serious: Yes (Life-Threatening, Other)
  Sender: TEVA
  Company Number: GB-MHRA-EMIS-3444-2e92be09-d293-4e4b-9b34-e470f30aaa3e

PATIENT
  Age: 72 Year
  Sex: Male
  Weight: 121 kg

DRUGS (4)
  1. INDAPAMIDE [Suspect]
     Active Substance: INDAPAMIDE
     Indication: Product used for unknown indication
     Dosage: EACH MORNING
     Route: 065
     Dates: start: 20250821, end: 20250912
  2. AMLODIPINE [Concomitant]
     Active Substance: AMLODIPINE BESYLATE
     Indication: Product used for unknown indication
     Dates: start: 20250612, end: 20250821
  3. Allevyn Life [Concomitant]
     Indication: Product used for unknown indication
     Dates: start: 20250820
  4. Allevyn Gentle Border [Concomitant]
     Indication: Product used for unknown indication
     Dates: start: 20250820

REACTIONS (1)
  - Toxic epidermal necrolysis [Recovering/Resolving]

NARRATIVE: CASE EVENT DATE: 20250830
